FAERS Safety Report 4285724-1 (Version None)
Quarter: 2004Q1

REPORT INFORMATION
  Report Type: 
  Country: None (occurrence: None)
  Receive Date: 20040202
  Receipt Date: 20040122
  Transmission Date: 20041129
  Serious: Yes (Hospitalization)
  Sender: FDA-Public Use
  Company Number: 200317789GDDC

PATIENT
  Age: 63 Year
  Sex: Female
  Weight: 58 kg

DRUGS (5)
  1. GAVISCON [Suspect]
     Indication: DYSPEPSIA
     Dosage: PO
     Route: 048
     Dates: start: 20030727, end: 20030727
  2. LITHIUM CARBONATE [Concomitant]
  3. CLONAZEPAM [Concomitant]
  4. THYROXINE SODIUM [Concomitant]
  5. CLINDAMYCIN [Concomitant]

REACTIONS (18)
  - ANAEMIA [None]
  - ANOREXIA [None]
  - ANOREXIA NERVOSA [None]
  - ASTHENIA [None]
  - BIPOLAR DISORDER [None]
  - BLOOD POTASSIUM DECREASED [None]
  - BLOOD PRESSURE SYSTOLIC INCREASED [None]
  - BLOOD THYROID STIMULATING HORMONE DECREASED [None]
  - DEHYDRATION [None]
  - DIARRHOEA [None]
  - DYSGEUSIA [None]
  - DYSPEPSIA [None]
  - INSOMNIA [None]
  - SALIVARY HYPERSECRETION [None]
  - THYROID DISORDER [None]
  - TREATMENT NONCOMPLIANCE [None]
  - TREMOR [None]
  - VOMITING [None]
